FAERS Safety Report 9895110 (Version 1)
Quarter: 2014Q1

REPORT INFORMATION
  Report Type: Spontaneous
  Country: US (occurrence: US)
  Receive Date: 20140213
  Receipt Date: 20140213
  Transmission Date: 20141002
  Serious: No
  Sender: FDA-Public Use
  Company Number: US-BRISTOL-MYERS SQUIBB COMPANY-18702159

PATIENT
  Age: 63 Year
  Sex: Female
  Weight: 90.7 kg

DRUGS (6)
  1. ABATACEPT SUBQ INJECTION 125MG/ML [Suspect]
     Dosage: 1DF:125MG/1ML
     Route: 058
  2. FOLIC ACID [Concomitant]
     Dosage: TABS
  3. VITAMIN D3 [Concomitant]
     Dosage: 1DF:2000 UNITS, TABS
  4. ASPIRIN [Concomitant]
     Dosage: TABS, ADULT
  5. CALTRATE + D [Concomitant]
     Dosage: 1DF:600-800 UNITS NOS, TABS
  6. CRESTOR [Concomitant]
     Dosage: TABS

REACTIONS (2)
  - Urinary tract infection [Unknown]
  - Upper respiratory tract infection [Unknown]
